FAERS Safety Report 6255195-4 (Version None)
Quarter: 2009Q3

REPORT INFORMATION
  Report Type: 
  Country: None (occurrence: None)
  Receive Date: 20090702
  Receipt Date: 20090303
  Transmission Date: 20100115
  Serious: No
  Sender: FDA-Public Use
  Company Number: US-BAYER-200914568NA

PATIENT
  Age: 61 Year
  Sex: Female

DRUGS (6)
  1. ULTRAVIST 370 [Suspect]
     Indication: COMPUTERISED TOMOGRAM THORAX
     Dosage: TOTAL DAILY DOSE: 80 ML  UNIT DOSE: 500 ML
     Route: 042
     Dates: start: 20090303, end: 20090303
  2. ADVAIR HFA [Concomitant]
  3. ALLEGRA [Concomitant]
  4. WELLBUTRIN [Concomitant]
  5. ATIVAN [Concomitant]
  6. HORMONE REPLACEMENT THERAPY [Concomitant]

REACTIONS (6)
  - DIZZINESS [None]
  - EYE PRURITUS [None]
  - LACRIMATION INCREASED [None]
  - SNEEZING [None]
  - THROAT IRRITATION [None]
  - THROAT TIGHTNESS [None]
